FAERS Safety Report 8805086 (Version 1)
Quarter: 2012Q4

REPORT INFORMATION
  Report Type: 
  Country: US (occurrence: US)
  Receive Date: 20120924
  Receipt Date: 20120924
  Transmission Date: 20130627
  Serious: No
  Sender: FDA-Public Use
  Company Number: US-ALLERGAN-1211173US

PATIENT
  Sex: Male

DRUGS (1)
  1. LUMIGAN� 0.01% [Suspect]
     Indication: DRUG USE FOR UNKNOWN INDICATION
     Dosage: 1 Gtt, single
     Dates: start: 20120813

REACTIONS (2)
  - Vision blurred [Recovering/Resolving]
  - Visual field defect [Unknown]
